FAERS Safety Report 8990522 (Version 1)
Quarter: 2012Q4

REPORT INFORMATION
  Report Type: 
  Country: IT (occurrence: IT)
  Receive Date: 20121228
  Receipt Date: 20121228
  Transmission Date: 20130627
  Serious: Yes (Disabling, Other)
  Sender: FDA-Public Use
  Company Number: IT-B.I. PHARMACEUTICALS,INC./RIDGEFIELD-2012-BI-04132GD

PATIENT
  Sex: Male

DRUGS (3)
  1. PRAMIPEXOLE [Suspect]
     Indication: PARKINSON^S DISEASE
     Dosage: 3 mg
  2. AMANTADINE [Suspect]
     Indication: OBSESSIVE-COMPULSIVE DISORDER
     Dosage: 200 mg
  3. LEVODOPA-CARBIDOPA [Concomitant]
     Indication: PARKINSON^S DISEASE
     Dosage: 300 mg

REACTIONS (7)
  - Obsessive-compulsive disorder [Recovered/Resolved]
  - Stereotypy [Recovered/Resolved]
  - Withdrawal syndrome [Unknown]
  - Nervousness [Unknown]
  - Irritability [Unknown]
  - Depression [Unknown]
  - Drug ineffective [Unknown]
